FAERS Safety Report 17392163 (Version 5)
Quarter: 2020Q2

REPORT INFORMATION
  Report Type: Spontaneous
  Country: US (occurrence: US)
  Receive Date: 20200207
  Receipt Date: 20200619
  Transmission Date: 20200713
  Serious: Yes (Other)
  Sender: FDA-Public Use
  Company Number: NVSC2020US026839

PATIENT
  Age: 88 Year
  Sex: Female

DRUGS (4)
  1. BEOVU [Suspect]
     Active Substance: BROLUCIZUMAB-DBLL
     Dosage: 6 MG
     Route: 047
     Dates: start: 20200121
  2. EYLEA [Suspect]
     Active Substance: AFLIBERCEPT
     Indication: NEOVASCULAR AGE-RELATED MACULAR DEGENERATION
     Dosage: Q6-8 WEEKS FOR YEARS
     Route: 065
  3. EYLEA [Suspect]
     Active Substance: AFLIBERCEPT
     Dosage: UNK, QID (OS)
     Route: 065
     Dates: start: 20191218
  4. BEOVU [Suspect]
     Active Substance: BROLUCIZUMAB-DBLL
     Indication: NEOVASCULAR AGE-RELATED MACULAR DEGENERATION
     Dosage: UNK, QD, ONLY GIVEN IN RIGHT EYE
     Route: 065
     Dates: start: 20191204

REACTIONS (13)
  - Keratic precipitates [Not Recovered/Not Resolved]
  - Uveitis [Unknown]
  - Retinal vasculitis [Not Recovered/Not Resolved]
  - Eye pain [Recovered/Resolved]
  - Optic nerve injury [Not Recovered/Not Resolved]
  - Eye haemorrhage [Unknown]
  - Eye swelling [Unknown]
  - Blindness [Not Recovered/Not Resolved]
  - Anterior chamber cell [Not Recovered/Not Resolved]
  - Iritis [Not Recovered/Not Resolved]
  - Eye inflammation [Not Recovered/Not Resolved]
  - Retinal artery occlusion [Unknown]
  - Ocular discomfort [Unknown]

NARRATIVE: CASE EVENT DATE: 20191226
